FAERS Safety Report 5014192-7 (Version None)
Quarter: 2006Q2

REPORT INFORMATION
  Report Type: 
  Country: None (occurrence: None)
  Receive Date: 20060414
  Receipt Date: 20051219
  Transmission Date: 20061013
  Serious: No
  Sender: FDA-Public Use
  Company Number: 2005SP004458

PATIENT
  Age: 70 Year
  Sex: Male

DRUGS (2)
  1. LUNESTA [Suspect]
     Dosage: 3 MG;HS;ORAL   : 6 MG;HS;ORAL
     Route: 048
     Dates: start: 20051201
  2. LUNESTA [Suspect]
     Dosage: 3 MG;HS;ORAL   : 6 MG;HS;ORAL
     Route: 048
     Dates: start: 20051201

REACTIONS (3)
  - DRUG INEFFECTIVE [None]
  - GAIT DISTURBANCE [None]
  - INSOMNIA [None]
